FAERS Safety Report 7342707-2 (Version None)
Quarter: 2011Q1

REPORT INFORMATION
  Report Type: 
  Country: None (occurrence: None)
  Receive Date: 20110310
  Receipt Date: 20110305
  Transmission Date: 20110831
  Serious: Yes (Other)
  Sender: FDA-Public Use
  Company Number: CL-PFIZER INC-2011049224

PATIENT
  Age: 26 Year
  Sex: Female

DRUGS (1)
  1. AZULFIDINE [Suspect]
     Dosage: UNK
     Route: 048

REACTIONS (3)
  - PURPURA [None]
  - HYPERSENSITIVITY [None]
  - PYREXIA [None]
